FAERS Safety Report 5519435-9 (Version None)
Quarter: 2007Q4

REPORT INFORMATION
  Report Type: 
  Country: None (occurrence: None)
  Receive Date: 20071116
  Receipt Date: 20071108
  Transmission Date: 20080405
  Serious: Yes (Hospitalization)
  Sender: FDA-Public Use
  Company Number: DE-AMGEN-UK236287

PATIENT
  Age: 64 Year
  Sex: Female
  Weight: 77.5 kg

DRUGS (9)
  1. ARANESP [Suspect]
     Indication: RENAL FAILURE CHRONIC
     Route: 042
     Dates: start: 20051119, end: 20060824
  2. ANTIHYPERTENSIVES [Concomitant]
     Route: 065
  3. VITAMIN B [Concomitant]
     Route: 065
  4. ASCORBIC ACID [Concomitant]
     Route: 065
  5. INSULIN [Concomitant]
     Route: 065
  6. CALCIUM [Concomitant]
     Route: 065
  7. FERRLECIT [Concomitant]
     Route: 065
  8. IRON [Concomitant]
     Route: 065
  9. UNSPECIFIED DIURETIC [Concomitant]
     Route: 065

REACTIONS (1)
  - SHUNT OCCLUSION [None]
